FAERS Safety Report 5425629-3 (Version None)
Quarter: 2007Q3

REPORT INFORMATION
  Report Type: 
  Country: None (occurrence: None)
  Receive Date: 20070824
  Receipt Date: 20070813
  Transmission Date: 20080115
  Serious: Yes (Other)
  Sender: FDA-Public Use
  Company Number: US-PFIZER INC-2007067395

PATIENT
  Age: 71 Year
  Sex: Female

DRUGS (5)
  1. AMLODIPINE [Suspect]
  2. IBUPROFEN [Suspect]
  3. CALCIUM [Suspect]
  4. ALENDRONATE SODIUM [Suspect]
  5. HYDROXYCHLOROQUINE SULFATE [Suspect]

REACTIONS (1)
  - MYELODYSPLASTIC SYNDROME [None]
